FAERS Safety Report 10081769 (Version 1)
Quarter: 2014Q2

REPORT INFORMATION
  Report Type: Spontaneous
  Country: FR (occurrence: None)
  Receive Date: 20140414
  Receipt Date: 20140414
  Transmission Date: 20141212
  Serious: Yes (Other)
  Sender: FDA-Public Use
  Company Number: FR-ALKEM-000555

PATIENT
  Sex: Male

DRUGS (3)
  1. MYCOPHENOLATE MOFETIL [Suspect]
     Indication: TRANSPLANT
  2. PREDNISOLONE [Suspect]
     Indication: TRANSPLANT
  3. TACROLIMUS [Suspect]
     Indication: TRANSPLANT

REACTIONS (1)
  - Osteopenia [None]
